FAERS Safety Report 5632180-4 (Version None)
Quarter: 2008Q1

REPORT INFORMATION
  Report Type: 
  Country: None (occurrence: None)
  Receive Date: 20080220
  Receipt Date: 20080212
  Transmission Date: 20080703
  Serious: Yes (Death, Other)
  Sender: FDA-Public Use
  Company Number: KR-AVENTIS-200811427GDDC

PATIENT
  Age: 65 Year
  Sex: Female
  Weight: 63 kg

DRUGS (8)
  1. TAXOTERE [Suspect]
     Indication: BREAST CANCER
     Route: 042
     Dates: start: 20070831, end: 20080125
  2. ASPIRIN [Concomitant]
     Route: 048
  3. GLICLAZIDE [Concomitant]
     Dosage: DOSE QUANTITY: 0.5
     Route: 048
  4. AMLODIPINE [Concomitant]
     Dosage: DOSE QUANTITY: 1
     Route: 048
  5. TEMISARTAN [Concomitant]
     Dosage: DOSE QUANTITY: 1
     Route: 048
  6. ANALGESICS [Concomitant]
     Dosage: DOSE QUANTITY: 4
     Route: 048
  7. GABAPENTIN [Concomitant]
     Dosage: DOSE QUANTITY: 1
     Route: 048
  8. TIANEPTINE SODIUM [Concomitant]
     Dosage: DOSE QUANTITY: 1
     Route: 048

REACTIONS (6)
  - ABDOMINAL DISTENSION [None]
  - DEATH [None]
  - FEBRILE NEUTROPENIA [None]
  - HYPOTENSION [None]
  - RENAL FAILURE ACUTE [None]
  - SEPTIC SHOCK [None]
